FAERS Safety Report 8325693-8 (Version None)
Quarter: 2012Q2

REPORT INFORMATION
  Report Type: 
  Country: None (occurrence: None)
  Receive Date: 20120501
  Receipt Date: 20120501
  Transmission Date: 20120825
  Serious: No
  Sender: FDA-Public Use
  Company Number: None

PATIENT
  Age: 38 Year
  Sex: Male
  Weight: 52.163 kg

DRUGS (1)
  1. HUMIRA [Suspect]
     Indication: ANKYLOSING SPONDYLITIS
     Dosage: 40MG/.08ML
     Route: 065
     Dates: start: 20120409, end: 20120423

REACTIONS (3)
  - ANXIETY [None]
  - PANIC ATTACK [None]
  - CONDITION AGGRAVATED [None]
